FAERS Safety Report 5546622-6 (Version None)
Quarter: 2007Q4

REPORT INFORMATION
  Report Type: 
  Country: None (occurrence: None)
  Receive Date: 20071211
  Receipt Date: 20071129
  Transmission Date: 20080405
  Serious: Yes (Death)
  Sender: FDA-Public Use
  Company Number: US-JNJFOC-20071200445

PATIENT
  Age: 2 Year

DRUGS (1)
  1. FENTANYL [Suspect]
     Indication: ACCIDENTAL EXPOSURE
     Route: 062

REACTIONS (1)
  - ACCIDENTAL EXPOSURE [None]
